FAERS Safety Report 20328835 (Version 1)
Quarter: 2022Q1

REPORT INFORMATION
  Report Type: Report from Study
  Country: FR (occurrence: None)
  Receive Date: 20220112
  Receipt Date: 20220112
  Transmission Date: 20220423
  Serious: Yes (Hospitalization)
  Sender: FDA-Public Use
  Company Number: FR-Merck Healthcare KGaA-9266438

PATIENT
  Sex: Female

DRUGS (2)
  1. LEVOTHYROXINE [Suspect]
     Active Substance: LEVOTHYROXINE
     Indication: Goitre
  2. LEVOTHYROXINE [Suspect]
     Active Substance: LEVOTHYROXINE
     Dosage: 4 TIMES HIGHER DOSE

REACTIONS (6)
  - Heart rate decreased [Unknown]
  - Blood pressure abnormal [Unknown]
  - Weight decreased [Unknown]
  - Hypothyroidism [Unknown]
  - Thyroid size decreased [Unknown]
  - Fatigue [Unknown]
